FAERS Safety Report 5169453-8 (Version None)
Quarter: 2006Q4

REPORT INFORMATION
  Report Type: 
  Country: None (occurrence: None)
  Receive Date: 20061201
  Receipt Date: 20060912
  Transmission Date: 20070319
  Serious: Yes (Other)
  Sender: FDA-Public Use
  Company Number: 2006123237

PATIENT
  Age: 53 Year
  Sex: Male
  Weight: 74.8435 kg

DRUGS (3)
  1. BEXTRA [Suspect]
     Indication: SKELETAL INJURY
     Dosage: 40 MG (20 MG, 2 IN 1 D)
     Dates: start: 20021001, end: 20021115
  2. COMBIVENT [Concomitant]
  3. LANTUS [Concomitant]

REACTIONS (5)
  - CARDIOVASCULAR DISORDER [None]
  - INFECTION [None]
  - INJURY [None]
  - RASH [None]
  - STEVENS-JOHNSON SYNDROME [None]
